FAERS Safety Report 6494015-X (Version None)
Quarter: 2009Q4

REPORT INFORMATION
  Report Type: 
  Country: None (occurrence: None)
  Receive Date: 20091214
  Receipt Date: 20081209
  Transmission Date: 20100525
  Serious: No
  Sender: FDA-Public Use
  Company Number: US-BRISTOL-MYERS SQUIBB COMPANY-14438188

PATIENT
  Age: 22 Year
  Sex: Male

DRUGS (2)
  1. ABILIFY [Suspect]
     Dates: start: 20080701, end: 20081029
  2. LUNESTA [Suspect]
     Indication: INSOMNIA
     Route: 048
     Dates: start: 20080701, end: 20081029

REACTIONS (2)
  - HYPERSOMNIA [None]
  - PSYCHOTIC BEHAVIOUR [None]
